FAERS Safety Report 19710161 (Version 2)
Quarter: 2021Q4

REPORT INFORMATION
  Report Type: Spontaneous
  Country: US (occurrence: US)
  Receive Date: 20210816
  Receipt Date: 20211013
  Transmission Date: 20220303
  Serious: Yes (Other)
  Sender: FDA-Public Use
  Company Number: US-PFIZER INC-202101008125

PATIENT

DRUGS (1)
  1. LIDOCAINE HYDROCHLORIDE [Suspect]
     Active Substance: LIDOCAINE HYDROCHLORIDE
     Dosage: UNK(1%, 50ML VIAL, ADMINISTERED UNKNOWN)

REACTIONS (3)
  - Cellulitis [Unknown]
  - Rash [Unknown]
  - Suspected product contamination [Unknown]
